FAERS Safety Report 16778484 (Version 7)
Quarter: 2020Q2

REPORT INFORMATION
  Report Type: Spontaneous
  Country: FR (occurrence: FR)
  Receive Date: 20190906
  Receipt Date: 20200512
  Transmission Date: 20200713
  Serious: Yes (Death, Life-Threatening, Hospitalization, Other)
  Sender: FDA-Public Use
  Company Number: FR-AUROBINDO-AUR-APL-2019-056961

PATIENT
  Age: 37 Year
  Sex: Male
  Weight: 91 kg

DRUGS (11)
  1. DESLORATADINE FILM-COATED TABLET [Suspect]
     Active Substance: DESLORATADINE
     Indication: PRODUCT USED FOR UNKNOWN INDICATION
     Dosage: 150 MILLIGRAM, TOTAL
     Route: 048
  2. ALPRAZOLAM TABLETS [Suspect]
     Active Substance: ALPRAZOLAM
     Dosage: 30 MG OR 0.33MG/KG
     Route: 065
  3. PAROXETINE FILM-COATED TABLET [Suspect]
     Active Substance: PAROXETINE
     Indication: PRODUCT USED FOR UNKNOWN INDICATION
     Dosage: 560 MILLIGRAM, TOTAL
     Route: 048
  4. LEVOTHYROXINE. [Suspect]
     Active Substance: LEVOTHYROXINE
     Indication: PRODUCT USED FOR UNKNOWN INDICATION
     Dosage: DOSE UNKNOWN
     Route: 048
  5. ALPRAZOLAM TABLETS [Suspect]
     Active Substance: ALPRAZOLAM
     Indication: PRODUCT USED FOR UNKNOWN INDICATION
     Dosage: 15 MILLIGRAM, 1 TOTAL
     Route: 048
  6. IBUPROFEN FILM-COATED TABLET [Suspect]
     Active Substance: IBUPROFEN
     Indication: PRODUCT USED FOR UNKNOWN INDICATION
     Dosage: 12.4 GRAM, 1 TOTAL, INGESTED IBUPROFEN (12.4 G).
     Route: 048
  7. TRIMEBUTINE [Suspect]
     Active Substance: TRIMEBUTINE
     Indication: PRODUCT USED FOR UNKNOWN INDICATION
     Dosage: 2 GRAM, 1 TOTAL
     Route: 048
  8. COLCHICINE OPOCALCIUM [Suspect]
     Active Substance: COLCHICINE
     Indication: PRODUCT USED FOR UNKNOWN INDICATION
     Dosage: 30 MILLIGRAM(INGESTION OF COLCHICINE (30 MG COLCHICINE OPOCALCIUM? I.E. 0.33 MG/KG)
     Route: 048
  9. PREDNISONE TABLET [Suspect]
     Active Substance: PREDNISONE
     Indication: PRODUCT USED FOR UNKNOWN INDICATION
     Dosage: 600 MILLIGRAM
     Route: 048
  10. COLCHICINE OPOCALCIUM [Suspect]
     Active Substance: COLCHICINE
     Dosage: 0.30 MILLIGRAM, TOTAL
     Route: 048
  11. IBUPROFEN FILM-COATED TABLET [Suspect]
     Active Substance: IBUPROFEN
     Dosage: 2.4 GRAM
     Route: 048

REACTIONS (20)
  - Multiple organ dysfunction syndrome [Fatal]
  - Shock [Fatal]
  - Intentional overdose [Fatal]
  - Diarrhoea [Fatal]
  - Hyperthermia [Fatal]
  - Toxicity to various agents [Fatal]
  - Drug interaction [Fatal]
  - Hepatic failure [Fatal]
  - Intestinal ischaemia [Fatal]
  - Acute kidney injury [Fatal]
  - Hyperleukocytosis [Fatal]
  - Patient uncooperative [Fatal]
  - Poisoning deliberate [Fatal]
  - Abdominal pain [Fatal]
  - Leukocytosis [Fatal]
  - Intentional product use issue [Fatal]
  - Completed suicide [Fatal]
  - Disseminated intravascular coagulation [Fatal]
  - Vomiting [Fatal]
  - Muscle spasms [Fatal]
